FAERS Safety Report 7794912-9 (Version None)
Quarter: 2011Q4

REPORT INFORMATION
  Report Type: 
  Country: None (occurrence: None)
  Receive Date: 20111004
  Receipt Date: 20110927
  Transmission Date: 20120403
  Serious: No
  Sender: FDA-Public Use
  Company Number: PHEH2011US04180

PATIENT
  Sex: Male

DRUGS (14)
  1. METFORMAX [Concomitant]
     Indication: DIABETES MELLITUS
     Dosage: 500 MG, BID
     Dates: start: 20110401
  2. RESTASIS [Concomitant]
     Indication: LACRIMATION INCREASED
     Dosage: 1 DRP, Q12H
     Route: 047
     Dates: start: 20110701
  3. LOVAZA [Concomitant]
  4. CHLORELLA VULGARIS [Concomitant]
  5. SELENIUM [Concomitant]
  6. ALPHA LIPOIC ACID [Concomitant]
  7. SPIRULINA [Concomitant]
  8. ALLOPURINOL [Concomitant]
     Indication: BLOOD URIC ACID
     Dosage: 300 MG, QD
     Dates: start: 20110318
  9. MULTIPLE VITAMINS [Concomitant]
     Dosage: 1 DF, QD
  10. ZINC [Concomitant]
  11. CHROMIUM CHLORIDE [Concomitant]
  12. TASIGNA [Suspect]
     Dosage: 300 MG, BID
     Route: 048
     Dates: start: 20101230
  13. FERROUS SULFATE TAB [Concomitant]
     Indication: IRON DEFICIENCY
     Dosage: UNK %, BID
     Dates: start: 20110418
  14. CINNAMON [Concomitant]

REACTIONS (4)
  - DRY EYE [None]
  - MEMORY IMPAIRMENT [None]
  - ABNORMAL SENSATION IN EYE [None]
  - CONSTIPATION [None]
